FAERS Safety Report 16063632 (Version 1)
Quarter: 2019Q1

REPORT INFORMATION
  Report Type: Report from Study
  Country: GB (occurrence: GB)
  Receive Date: 20190312
  Receipt Date: 20190312
  Transmission Date: 20190418
  Serious: Yes (Death, Hospitalization)
  Sender: FDA-Public Use
  Company Number: GB-SA-2017SA146974

PATIENT
  Age: 58 Year
  Sex: Female
  Weight: 81 kg

DRUGS (7)
  1. AMLODIPINE [Concomitant]
     Active Substance: AMLODIPINE BESYLATE
     Dosage: 5 MG,QD
     Route: 048
  2. BLINDED VANDETANIB [Suspect]
     Active Substance: VANDETANIB
     Indication: BREAST CANCER METASTATIC
     Dosage: 300 MG
     Route: 065
     Dates: start: 20170515, end: 20170731
  3. FULVESTRANT. [Suspect]
     Active Substance: FULVESTRANT
     Indication: BREAST CANCER METASTATIC
     Dosage: 500 MG
     Dates: start: 20170515, end: 20170731
  4. FLUOXETINE [Concomitant]
     Active Substance: FLUOXETINE HYDROCHLORIDE
     Dosage: 20 MG,QD
     Route: 048
  5. BLINDED PLACEBO [Suspect]
     Active Substance: INVESTIGATIONAL PRODUCT
     Indication: BREAST CANCER METASTATIC
     Dosage: 300 MG
     Route: 065
     Dates: start: 20170515, end: 20170731
  6. BLINDED VANDETANIB [Suspect]
     Active Substance: VANDETANIB
     Indication: BREAST CANCER METASTATIC
     Dosage: 300 MG
     Route: 065
     Dates: start: 20170515, end: 20170731
  7. DENOSUMAB [Concomitant]
     Active Substance: DENOSUMAB
     Dosage: 120 MG, Q4W
     Route: 058
     Dates: start: 20150219, end: 20170710

REACTIONS (6)
  - Gamma-glutamyltransferase increased [Recovered/Resolved]
  - Nausea [Recovered/Resolved]
  - Jaundice [Recovered/Resolved]
  - Malignant neoplasm progression [None]
  - Breast cancer metastatic [Fatal]
  - Hepatic function abnormal [None]

NARRATIVE: CASE EVENT DATE: 20170717
